FAERS Safety Report 8759765 (Version 4)
Quarter: 2015Q2

REPORT INFORMATION
  Report Type: Spontaneous
  Country: US (occurrence: US)
  Receive Date: 20120829
  Receipt Date: 20150430
  Transmission Date: 20150821
  Serious: Yes (Other)
  Sender: FDA-Public Use
  Company Number: US-ASTRAZENECA-2012SE60521

PATIENT
  Age: 22523 Day
  Sex: Female

DRUGS (34)
  1. XANAX [Concomitant]
     Active Substance: ALPRAZOLAM
     Indication: ANXIETY
     Dosage: 1 DF FOUR TIMES DAILY AS NEEDED
  2. PROAIR HFA [Concomitant]
     Active Substance: ALBUTEROL SULFATE
     Dosage: 108 (9. BASE) MCG/ACT INHALER, TWO PUFFS EVERY SIX HOURS AS NEEDED
  3. INFLUENZA INJECTION [Concomitant]
     Active Substance: INFLUENZA VIRUS VACCINE
     Dosage: ADULT TRI PFREE
     Dates: start: 20121031
  4. NEXIUM [Suspect]
     Active Substance: ESOMEPRAZOLE MAGNESIUM
     Route: 048
  5. ASPIRIN. [Concomitant]
     Active Substance: ASPIRIN
  6. PNEUMOVAX 23 [Concomitant]
     Active Substance: PNEUMOCOCCAL VACCINE, POLYVALENT 23
     Dates: start: 20130924
  7. TDAP [Concomitant]
     Dates: start: 20130924
  8. ZYRTEC [Concomitant]
     Active Substance: CETIRIZINE HYDROCHLORIDE
  9. FLEXERIL [Concomitant]
     Active Substance: CYCLOBENZAPRINE HYDROCHLORIDE
     Indication: MUSCLE SPASMS
     Dosage: 1 TABLET TWO TIMES A DAY AS NEEDED
  10. FISH OIL [Concomitant]
     Active Substance: FISH OIL
  11. PHENOBARBITAL. [Concomitant]
     Active Substance: PHENOBARBITAL
     Indication: ABDOMINAL PAIN UPPER
     Dosage: 20 MG/5 ML, 30 MLS (120 MG TOTAL) DAILY AS NEEDED
  12. CRESTOR [Suspect]
     Active Substance: ROSUVASTATIN CALCIUM
     Route: 048
  13. EPIPEN [Concomitant]
     Active Substance: EPINEPHRINE
     Dosage: 0.3 MG/0.3 ML DEVI, 1 EACH AS DIRECTED CONTINUOUS PRN.
  14. BYETTA [Suspect]
     Active Substance: EXENATIDE
     Dosage: 250MCG/ML 10MCG DOSE PEN 2.4 ML, TWO TIMES A DAY (10 MCG/0.04 ML)
     Route: 058
  15. ZESTRIL [Suspect]
     Active Substance: LISINOPRIL
     Route: 048
  16. COREG [Concomitant]
     Active Substance: CARVEDILOL
     Dosage: 1 TABLET TWICE DAILY WITH MEALS
  17. LASIX [Concomitant]
     Active Substance: FUROSEMIDE
  18. DESYREL [Concomitant]
     Active Substance: TRAZODONE HYDROCHLORIDE
  19. INFLUENZA INJECTION [Concomitant]
     Active Substance: INFLUENZA VIRUS VACCINE
     Dosage: ADULT TRI PFREE
     Dates: start: 20131003
  20. LEVOTHROID [Concomitant]
     Active Substance: LEVOTHYROXINE SODIUM
  21. TOPAMAX [Concomitant]
     Active Substance: TOPIRAMATE
  22. SYNTHROID [Concomitant]
     Active Substance: LEVOTHYROXINE SODIUM
     Dosage: ONE TABLET ONE TIME DAILY ON AN EMPTY STOMACH
  23. MICRO-K [Concomitant]
     Active Substance: POTASSIUM CHLORIDE
     Dosage: 10 MEQ CR CAPSULE, 1 CAPSULE TWICE DAILY
  24. INFLUENZA INJECTION [Concomitant]
     Active Substance: INFLUENZA VIRUS VACCINE
     Dosage: ADULT QUAD
     Dates: start: 20141029
  25. ADVAIR DISKUS [Concomitant]
     Active Substance: FLUTICASONE PROPIONATE\SALMETEROL XINAFOATE
     Dosage: 250-50 MCG/DOSE AEPB, 1 PUFF INTO THE LUNGS TWO TIMES DAILY
  26. ZESTRIL [Suspect]
     Active Substance: LISINOPRIL
     Dosage: PRINIVIL, 2.5 MG EVERY DAY
     Route: 048
  27. PRILOSEC [Suspect]
     Active Substance: OMEPRAZOLE MAGNESIUM
     Route: 048
  28. VITAMIN B12 [Concomitant]
     Active Substance: CYANOCOBALAMIN
     Dosage: 1000 MCG/ML INTO THE MUSCLE EVERY 30 DAYS
  29. RELPAX [Concomitant]
     Active Substance: ELETRIPTAN HYDROBROMIDE
     Dosage: 40 MG AS NEEDED, MAY REPEAT IN 2 HOURS IF NECESSARY, MAXIMUM DAILY DOSE 80 MG
  30. GLUCOTROL [Concomitant]
     Active Substance: GLIPIZIDE
     Dosage: 1 TABLET TWICE DAILY BEFORE MEALS
  31. NITRO-DUR [Concomitant]
     Active Substance: NITROGLYCERIN
     Indication: ANGINA PECTORIS
     Dosage: 0.4 MG/HR, 1 PATCH DAILY
  32. NITROSTAT [Concomitant]
     Active Substance: NITROGLYCERIN
     Indication: ANGINA PECTORIS
     Dosage: 0.4 MG SL TABLET, 04 MG UNDER THE TONGUE EVERY 5 MINUTES AS NEEDED
  33. ZOSTER [Concomitant]
     Dates: start: 20141203
  34. VITAMIN D [Concomitant]
     Active Substance: CHOLECALCIFEROL

REACTIONS (6)
  - Sinusitis [Unknown]
  - Drug hypersensitivity [Unknown]
  - Blood cholesterol increased [Unknown]
  - Lung neoplasm malignant [Unknown]
  - Bronchitis [Unknown]
  - Headache [Unknown]

NARRATIVE: CASE EVENT DATE: 20090228
